FAERS Safety Report 17655474 (Version 1)
Quarter: 2020Q2

REPORT INFORMATION
  Report Type: Spontaneous
  Country: FR (occurrence: FR)
  Receive Date: 20200410
  Receipt Date: 20200410
  Transmission Date: 20200713
  Serious: Yes (Other)
  Sender: FDA-Public Use
  Company Number: FR-TEVA-2020-FR-1222066

PATIENT
  Age: 80 Year
  Sex: Female
  Weight: 63.4 kg

DRUGS (4)
  1. LAROSCORBINE [Suspect]
     Active Substance: ASCORBIC ACID
     Indication: PURPURA
     Dosage: 1G
     Route: 042
     Dates: start: 20200317, end: 20200322
  2. RISPERIDONE. [Suspect]
     Active Substance: RISPERIDONE
     Indication: AGITATION
     Dosage: 0.5 MG
     Route: 048
     Dates: start: 20200315, end: 20200322
  3. AMLODIPINE [Suspect]
     Active Substance: AMLODIPINE BESYLATE
     Indication: HYPERTENSION
     Dosage: 5 MG
     Route: 048
     Dates: start: 20200318, end: 20200323
  4. LOVENOX [Suspect]
     Active Substance: ENOXAPARIN SODIUM
     Indication: THROMBOSIS PROPHYLAXIS
     Dosage: 0.4ML
     Route: 058
     Dates: start: 20200312, end: 20200326

REACTIONS (2)
  - Rash papular [Not Recovered/Not Resolved]
  - Erythema [Not Recovered/Not Resolved]

NARRATIVE: CASE EVENT DATE: 20200321
